FAERS Safety Report 5985280-3 (Version None)
Quarter: 2008Q4

REPORT INFORMATION
  Report Type: 
  Country: None (occurrence: None)
  Receive Date: 20081203
  Receipt Date: 20081119
  Transmission Date: 20090506
  Serious: Yes (Death, Life-Threatening)
  Sender: FDA-Public Use
  Company Number: 20638

PATIENT
  Age: 47 Year
  Sex: Female
  Weight: 55 kg

DRUGS (19)
  1. METHOTREXATE [Suspect]
  2. KINERET [Suspect]
  3. REMICADE [Suspect]
     Indication: RHEUMATOID ARTHRITIS
     Dosage: 216 MG FREQ UNK IV
     Route: 042
     Dates: start: 20010723, end: 20021007
  4. RITUXIMAB [Suspect]
  5. AZATHIOPRINE [Concomitant]
  6. CYCLOPHOSPHAMIDE [Concomitant]
  7. CYCLOSPORINE [Concomitant]
  8. HRT [Concomitant]
  9. HYDROXYCHLORQUINE [Concomitant]
  10. ILOPROST [Concomitant]
  11. IMMUNOGLOBULIN NORMAL [Concomitant]
  12. ISONIAZID [Concomitant]
  13. LEFLUNOMIDE [Concomitant]
  14. LITHIUM [Concomitant]
  15. METHYLPREDNISOLONE 16MG TAB [Concomitant]
  16. MORPHINE SULFATE [Concomitant]
  17. PENICILLAMINE [Concomitant]
  18. PLAQUENIL [Concomitant]
  19. PREDNISOLONE [Concomitant]

REACTIONS (7)
  - ABDOMINAL PAIN [None]
  - ANAPHYLACTIC SHOCK [None]
  - DRUG INEFFECTIVE [None]
  - OVARIAN CANCER METASTATIC [None]
  - PELVIC PAIN [None]
  - PLEURAL EFFUSION [None]
  - RASH [None]
